FAERS Safety Report 10261873 (Version 1)
Quarter: 2014Q2

REPORT INFORMATION
  Report Type: Spontaneous
  Country: US (occurrence: US)
  Receive Date: 20140626
  Receipt Date: 20140626
  Transmission Date: 20141212
  Serious: Yes (Hospitalization)
  Sender: FDA-Public Use
  Company Number: US-BAYER-2014-094840

PATIENT
  Age: 22 Year
  Sex: Female
  Weight: 122.45 kg

DRUGS (5)
  1. YAZ [Suspect]
  2. YASMIN [Suspect]
     Indication: POLYCYSTIC OVARIES
  3. ALLEGRA [Concomitant]
     Dosage: LONG TERM USE
  4. NASACORT [Concomitant]
     Dosage: LONG TERM USE
  5. LEVOXYL [Concomitant]
     Dosage: LONG TERM USE

REACTIONS (1)
  - Pulmonary embolism [Recovered/Resolved]
